FAERS Safety Report 25171576 (Version 1)
Quarter: 2025Q2

REPORT INFORMATION
  Report Type: Spontaneous
  Country: CN (occurrence: CN)
  Receive Date: 20250408
  Receipt Date: 20250408
  Transmission Date: 20250716
  Serious: Yes (Hospitalization, Disabling)
  Sender: ALEXION PHARMACEUTICALS
  Company Number: CN-ASTRAZENECA-202504CHN000864CN

PATIENT
  Age: 60 Year
  Weight: 70 kg

DRUGS (3)
  1. IMFINZI [Suspect]
     Active Substance: DURVALUMAB
     Indication: Lung neoplasm malignant
  2. OLECLUMAB [Concomitant]
     Active Substance: OLECLUMAB
     Indication: Lung neoplasm malignant
  3. MONALIZUMAB [Concomitant]
     Active Substance: MONALIZUMAB
     Indication: Lung neoplasm malignant

REACTIONS (2)
  - Drug eruption [Recovering/Resolving]
  - Hypothyroidism [Recovering/Resolving]
